FAERS Safety Report 8234714-2 (Version None)
Quarter: 2012Q1

REPORT INFORMATION
  Report Type: 
  Country: None (occurrence: None)
  Receive Date: 20120326
  Receipt Date: 20120321
  Transmission Date: 20120608
  Serious: Yes (Other)
  Sender: FDA-Public Use
  Company Number: SE-PFIZER INC-2012073043

PATIENT
  Age: 46 Year
  Sex: Male

DRUGS (3)
  1. ALVEDON [Concomitant]
  2. PIPERACILLIN AND TAZOBACTAM [Suspect]
     Indication: ESCHERICHIA SEPSIS
     Dosage: 12 G, DAILY
     Route: 042
     Dates: start: 20120202, end: 20120205
  3. GENSUMYCIN [Concomitant]

REACTIONS (1)
  - TRANSAMINASES INCREASED [None]
